FAERS Safety Report 5629503-9 (Version None)
Quarter: 2008Q1

REPORT INFORMATION
  Report Type: 
  Country: None (occurrence: None)
  Receive Date: 20080218
  Receipt Date: 20080211
  Transmission Date: 20080703
  Serious: Yes (Death, Hospitalization)
  Sender: FDA-Public Use
  Company Number: PL-ASTRAZENECA-2007AP03863

PATIENT
  Age: 25955 Day
  Sex: Male

DRUGS (20)
  1. IRESSA [Suspect]
     Indication: HYPOPHARYNGEAL CANCER
     Dosage: CONCOMITANT PHASE
     Route: 048
     Dates: start: 20050711, end: 20050907
  2. IRESSA [Suspect]
     Dosage: MAINTENANCE PHASE
     Route: 048
     Dates: start: 20050908, end: 20070410
  3. CISPLATIN [Suspect]
     Indication: HYPOPHARYNGEAL CANCER
     Route: 042
     Dates: start: 20050718, end: 20050718
  4. CISPLATIN [Suspect]
     Route: 042
     Dates: start: 20050808, end: 20050808
  5. CISPLATIN [Suspect]
     Route: 042
     Dates: start: 20050829, end: 20050829
  6. RADIOTHERAPY [Suspect]
     Indication: HYPOPHARYNGEAL CANCER
     Dosage: 2 GRAYS
     Dates: start: 20050718, end: 20050722
  7. RADIOTHERAPY [Suspect]
     Dosage: 2 GRAYS
     Dates: start: 20050725, end: 20050729
  8. RADIOTHERAPY [Suspect]
     Dosage: 2 GRAYS
     Dates: start: 20050801, end: 20050805
  9. RADIOTHERAPY [Suspect]
     Dosage: 2 GRAYS
     Dates: start: 20050809, end: 20050812
  10. RADIOTHERAPY [Suspect]
     Dosage: 2 GRAYS
     Dates: start: 20050816, end: 20050816
  11. RADIOTHERAPY [Suspect]
     Dosage: 2 GRAYS
     Dates: start: 20050818, end: 20050819
  12. RADIOTHERAPY [Suspect]
     Dosage: 2 GRAYS
     Dates: start: 20050822, end: 20050826
  13. RADIOTHERAPY [Suspect]
     Dosage: 2 GRAYS
     Dates: start: 20050829, end: 20050907
  14. LORATYDYNA [Concomitant]
     Indication: RASH
     Route: 048
     Dates: start: 20050811
  15. LORATYDYNA [Concomitant]
     Indication: SKIN TOXICITY
     Route: 048
     Dates: start: 20050811
  16. CALCIUM [Concomitant]
     Indication: RASH
     Route: 048
     Dates: start: 20050811
  17. CALCIUM [Concomitant]
     Indication: SKIN TOXICITY
     Route: 048
     Dates: start: 20050811
  18. NYSTATYNA SUSPENSION [Concomitant]
     Indication: PAIN
     Route: 048
     Dates: start: 20050811
  19. NYSTATYNA SUSPENSION [Concomitant]
     Indication: PHARYNGITIS
     Route: 048
     Dates: start: 20050811
  20. 2% LIGNOCAINI SOLUTION [Concomitant]
     Indication: PAIN
     Route: 048
     Dates: start: 20050811

REACTIONS (3)
  - DEATH [None]
  - PHARYNGEAL INFLAMMATION [None]
  - STOMATITIS [None]
